FAERS Safety Report 18898722 (Version 1)
Quarter: 2021Q1

REPORT INFORMATION
  Report Type: Spontaneous
  Country: US (occurrence: US)
  Receive Date: 20210215
  Receipt Date: 20210215
  Transmission Date: 20210420
  Serious: Yes (Other)
  Sender: FDA-Public Use
  Company Number: None

PATIENT
  Age: 67 Year
  Sex: Female
  Weight: 67.95 kg

DRUGS (9)
  1. VITAMIN D3 [Concomitant]
     Active Substance: CHOLECALCIFEROL
  2. VITAMIN B COMPLEX [Concomitant]
     Active Substance: CYANOCOBALAMIN\DEXPANTHENOL\NIACINAMIDE\PYRIDOXINE HYDROCHLORIDE\RIBOFLAVIN 5^-PHOSPHATE SODIUM\THIAMINE HYDROCHLORIDE\VITAMIN B COMPLEX
  3. CALCIUM CITRATE [Concomitant]
     Active Substance: CALCIUM CITRATE
  4. OMEGA 3 [Concomitant]
     Active Substance: OMEGA-3 FATTY ACIDS
  5. METOPROLOL. [Concomitant]
     Active Substance: METOPROLOL
  6. MULTI VITAMIN [Concomitant]
     Active Substance: VITAMINS
  7. TRUBIOTICS [Concomitant]
     Active Substance: PROBIOTICS NOS
  8. PROLIA [Suspect]
     Active Substance: DENOSUMAB
     Indication: OSTEOPOROSIS
  9. RHINOCORT NASAL SPRAY [Concomitant]

REACTIONS (4)
  - Subchondral insufficiency fracture [None]
  - Gait disturbance [None]
  - Osteoarthritis [None]
  - Myalgia [None]

NARRATIVE: CASE EVENT DATE: 20201120
